FAERS Safety Report 5245121-9 (Version None)
Quarter: 2007Q1

REPORT INFORMATION
  Report Type: 
  Country: None (occurrence: None)
  Receive Date: 20070223
  Receipt Date: 20070213
  Transmission Date: 20070707
  Serious: Yes (Death, Life-Threatening, Hospitalization)
  Sender: FDA-Public Use
  Company Number: CN-BRISTOL-MYERS SQUIBB COMPANY-13657200

PATIENT
  Age: 83 Year
  Sex: Male

DRUGS (4)
  1. AZACTAM [Suspect]
     Route: 041
     Dates: start: 20041124, end: 20041126
  2. CEFODIZIME DISODIUM [Suspect]
     Dosage: ARTICLE TEXT STATES 1.0 G X 3/DAY, FROM 26-NOV, BUT TABLE 1 STATES 2.0 G X 2/DAY, FROM 25-NOV
     Route: 042
     Dates: start: 20041126
  3. CHLORTETRACYCLINE HCL [Concomitant]
     Route: 047
     Dates: start: 20041116
  4. LACTULOSE [Concomitant]
     Route: 048
     Dates: start: 20041122

REACTIONS (3)
  - APLASTIC ANAEMIA [None]
  - HAEMORRHAGE INTRACRANIAL [None]
  - TOXIC EPIDERMAL NECROLYSIS [None]
